FAERS Safety Report 4728133-0 (Version None)
Quarter: 2005Q3

REPORT INFORMATION
  Report Type: 
  Country: None (occurrence: None)
  Receive Date: 20050727
  Receipt Date: 20050711
  Transmission Date: 20060218
  Serious: No
  Sender: FDA-Public Use
  Company Number: A-CH2005-09138

PATIENT
  Age: 63 Year
  Sex: Female
  Weight: 43.8 kg

DRUGS (9)
  1. ZAVESCA [Suspect]
     Indication: GAUCHER'S DISEASE
     Dosage: 100 MG, TID, ORAL
     Route: 048
     Dates: end: 20050524
  2. ZAVESCA [Suspect]
     Indication: GAUCHER'S DISEASE
     Dosage: 100 MG, TID, ORAL
     Route: 048
     Dates: start: 20041124
  3. HYZAAR [Concomitant]
  4. FOSAMAX [Concomitant]
  5. CALCIUM (CALCIUM) [Concomitant]
  6. VITAMIN D3 (COLECALCIFEROL) [Concomitant]
  7. MODOPAR             (LEVODOPA, BENSERAZIDE HYDROCHLORIDE) [Concomitant]
  8. DI-ANTALVIC [Concomitant]
  9. ANTIDEPRESSANTS [Concomitant]

REACTIONS (4)
  - CONDITION AGGRAVATED [None]
  - DEPRESSION [None]
  - PARKINSON'S DISEASE [None]
  - WEIGHT DECREASED [None]
